FAERS Safety Report 5345234-7 (Version None)
Quarter: 2007Q2

REPORT INFORMATION
  Report Type: 
  Country: None (occurrence: None)
  Receive Date: 20070605
  Receipt Date: 20070524
  Transmission Date: 20071010
  Serious: Yes (Other)
  Sender: FDA-Public Use
  Company Number: PHBS2007TW08689

PATIENT
  Sex: Male

DRUGS (3)
  1. LESCOL XL [Suspect]
     Indication: HYPERLIPIDAEMIA
     Dosage: 80 MG, UNK
     Route: 048
     Dates: start: 20070509
  2. AMARYL [Concomitant]
     Dates: start: 20070509
  3. METFORMIN HCL [Concomitant]
     Dates: start: 20070509

REACTIONS (4)
  - HALLUCINATION, AUDITORY [None]
  - PALPITATIONS [None]
  - PHOTOPHOBIA [None]
  - TREMOR [None]
